FAERS Safety Report 15006135 (Version 1)
Quarter: 2018Q2

REPORT INFORMATION
  Report Type: Spontaneous
  Country: ES (occurrence: ES)
  Receive Date: 20180613
  Receipt Date: 20180613
  Transmission Date: 20180711
  Serious: Yes (Other)
  Sender: FDA-Public Use
  Company Number: ES-ROCHE-2138241

PATIENT
  Age: 96 Year
  Sex: Male

DRUGS (3)
  1. HYDROXYUREA. [Concomitant]
     Active Substance: HYDROXYUREA
     Indication: POLYCYTHAEMIA VERA
  2. HALOPERIDOL. [Suspect]
     Active Substance: HALOPERIDOL
     Indication: POLYCYTHAEMIA VERA
     Route: 065
  3. CLONAZEPAM. [Suspect]
     Active Substance: CLONAZEPAM
     Indication: POLYCYTHAEMIA VERA
     Route: 065

REACTIONS (3)
  - Pneumonia aspiration [Unknown]
  - Drug ineffective [Unknown]
  - Depressed level of consciousness [Unknown]
